FAERS Safety Report 9598273 (Version 1)
Quarter: 2013Q4

REPORT INFORMATION
  Report Type: Spontaneous
  Country: US (occurrence: US)
  Receive Date: 20131004
  Receipt Date: 20131004
  Transmission Date: 20140711
  Serious: No
  Sender: FDA-Public Use
  Company Number: US-AMGEN-USASP2013023079

PATIENT
  Age: 38 Year
  Sex: Female
  Weight: 90.7 kg

DRUGS (13)
  1. ENBREL [Suspect]
     Indication: PRODUCT USED FOR UNKNOWN INDICATION
     Dosage: 50 MG, QWK
     Route: 058
  2. PREDNISONE [Concomitant]
     Dosage: 1 MG, UNK
     Route: 048
  3. NASONEX [Concomitant]
     Indication: ACNE
     Dosage: 50 MUG, UNK
  4. LEVOTHYROXIN [Concomitant]
     Dosage: 112 MUG, UNK
     Route: 048
  5. CLARITIN                           /00413701/ [Concomitant]
     Dosage: 10 MG, UNK
     Route: 048
  6. VITAMIN D                          /00107901/ [Concomitant]
     Dosage: 400 UNIT, UNK
     Route: 048
  7. FLEXERIL                           /00428402/ [Concomitant]
     Dosage: 5 MG, UNK
     Route: 048
  8. B COMPLEX                          /00212701/ [Concomitant]
     Dosage: UNK
     Route: 048
  9. MULTIVITAMINS, PLAIN [Concomitant]
     Dosage: UNK
     Route: 048
  10. FOLIC ACID [Concomitant]
     Dosage: UNK
     Route: 048
  11. CALCIUM MAGNESIUM                  /01412301/ [Concomitant]
     Dosage: UNK
     Route: 048
  12. HYDROCODONE [Concomitant]
     Dosage: UNK
  13. POTASSIUM GUAIACOLSULFONATE [Concomitant]
     Dosage: UNK
     Route: 048

REACTIONS (1)
  - Injection site reaction [Unknown]
